FAERS Safety Report 4837959-4 (Version None)
Quarter: 2005Q4

REPORT INFORMATION
  Report Type: 
  Country: None (occurrence: None)
  Receive Date: 20051128
  Receipt Date: 20051116
  Transmission Date: 20060501
  Serious: Yes (Other)
  Sender: FDA-Public Use
  Company Number: RO-ROCHE-425327

PATIENT
  Age: 63 Year
  Sex: Male

DRUGS (4)
  1. COPEGUS [Suspect]
     Dosage: STOPPED ON AN UNKNOWN DATE FOR AN UNKNOWN AMOUNT OF TIME.
     Route: 048
     Dates: start: 20040215
  2. COPEGUS [Suspect]
     Route: 048
     Dates: end: 20051115
  3. AMANTADINE HCL [Suspect]
     Route: 065
     Dates: start: 20040215, end: 20040515
  4. PEGASYS [Concomitant]
     Route: 058
     Dates: start: 20040215, end: 20051115

REACTIONS (4)
  - DISABILITY [None]
  - INSOMNIA [None]
  - RASH [None]
  - SIGHT DISABILITY [None]
